FAERS Safety Report 8097783-9 (Version None)
Quarter: 2012Q1

REPORT INFORMATION
  Report Type: 
  Country: None (occurrence: None)
  Receive Date: 20120128
  Receipt Date: 20110718
  Transmission Date: 20120608
  Serious: No
  Sender: FDA-Public Use
  Company Number: US-ABBOTT-11P-163-0839979-00

PATIENT
  Age: 40 Year
  Sex: Female

DRUGS (1)
  1. HUMIRA [Suspect]
     Indication: CROHN'S DISEASE
     Dates: start: 20090701

REACTIONS (8)
  - CHEST DISCOMFORT [None]
  - ABDOMINAL PAIN [None]
  - PUSTULAR PSORIASIS [None]
  - VOMITING [None]
  - DIZZINESS [None]
  - INJECTION SITE HAEMORRHAGE [None]
  - DYSPNOEA [None]
  - NAUSEA [None]
